FAERS Safety Report 23472567 (Version 1)
Quarter: 2024Q1

REPORT INFORMATION
  Report Type: Spontaneous
  Country: NL (occurrence: NL)
  Receive Date: 20240202
  Receipt Date: 20240202
  Transmission Date: 20240410
  Serious: Yes (Other)
  Sender: FDA-Public Use
  Company Number: None

PATIENT
  Age: 15 Year
  Sex: Female
  Weight: 62 kg

DRUGS (13)
  1. ALVESCO [Suspect]
     Active Substance: CICLESONIDE
     Indication: Asthma
     Dosage: 2 TIMES A DAY 1 INHALE
     Route: 055
     Dates: end: 2019
  2. BUDESONIDE [Suspect]
     Active Substance: BUDESONIDE
     Indication: Sinusitis
     Dosage: 1-2 TIMES A DAY 1 DOSE
     Dates: end: 2018
  3. FLUTICASONE [Suspect]
     Active Substance: FLUTICASONE
     Indication: Eczema
     Dates: start: 20180820, end: 20210918
  4. BETAMETHASONE [Suspect]
     Active Substance: BETAMETHASONE\BETAMETHASONE DIPROPIONATE
     Indication: Eczema
     Dates: end: 20210918
  5. PREDNISOLONE [Suspect]
     Active Substance: PREDNISOLONE
     Dosage: 1 TABLET WHEN NEEDED
     Dates: start: 2019
  6. TRIAMCINOLONE ACETONIDE [Suspect]
     Active Substance: TRIAMCINOLONE ACETONIDE
     Indication: Eczema
     Dates: start: 2017, end: 20210918
  7. FLUTICASONE PROPIONATE [Suspect]
     Active Substance: FLUTICASONE PROPIONATE
     Indication: Sinusitis
     Dosage: ONCE A DAY
     Dates: start: 2020
  8. BUDESONIDE [Suspect]
     Active Substance: BUDESONIDE
     Indication: Asthma
     Dosage: 2 TIMES A DAY 1-2 INHALES
     Dates: end: 2018
  9. DEXAMETHASONE\TOBRAMYCIN [Suspect]
     Active Substance: DEXAMETHASONE\TOBRAMYCIN
     Dates: end: 2018
  10. PREDNISOLONE [Suspect]
     Active Substance: PREDNISOLONE
     Dosage: 1 TABLET WHEN NEEDED
     Dates: start: 2019
  11. ELIDEL [Concomitant]
     Active Substance: PIMECROLIMUS
     Dosage: ONLY SHORT IN FACE
     Dates: end: 2018
  12. DESLORATADINE TABLET 5MG / AERIUS TABLET FILMOMHULD 5MG [Concomitant]
     Dosage: TABLET, 5 MG (MILLIGRAM)
  13. TACROLIMUS [Concomitant]
     Active Substance: TACROLIMUS
     Dosage: ONLY SHORT IN FACE
     Dates: start: 2018

REACTIONS (10)
  - Adrenal disorder [Recovering/Resolving]
  - Steroid withdrawal syndrome [Recovering/Resolving]
  - Fatigue [Recovering/Resolving]
  - Skin swelling [Recovering/Resolving]
  - Skin exfoliation [Recovering/Resolving]
  - Poor quality sleep [Recovering/Resolving]
  - Erythema [Recovering/Resolving]
  - Dry skin [Recovering/Resolving]
  - Hypotension [Recovering/Resolving]
  - Temperature regulation disorder [Unknown]

NARRATIVE: CASE EVENT DATE: 20180823
